FAERS Safety Report 5211952-4 (Version None)
Quarter: 2007Q1

REPORT INFORMATION
  Report Type: 
  Country: None (occurrence: None)
  Receive Date: 20070118
  Receipt Date: 20070112
  Transmission Date: 20070707
  Serious: Yes (Other)
  Sender: FDA-Public Use
  Company Number: GB-AVENTIS-200710327GDDC

PATIENT
  Age: 6 Year
  Sex: Female

DRUGS (1)
  1. DESMOMELT [Suspect]
     Route: 060
     Dates: start: 20060810, end: 20060812

REACTIONS (3)
  - CHILLS [None]
  - PYREXIA [None]
  - VOMITING [None]
